FAERS Safety Report 5728331-3 (Version None)
Quarter: 2008Q2

REPORT INFORMATION
  Report Type: 
  Country: None (occurrence: None)
  Receive Date: 20080506
  Receipt Date: 20080429
  Transmission Date: 20081010
  Serious: Yes (Other)
  Sender: FDA-Public Use
  Company Number: PHEH2008US04183

PATIENT

DRUGS (2)
  1. TEKTURNA [Suspect]
  2. DIOVAN HCT [Suspect]

REACTIONS (1)
  - SYNCOPE [None]
